FAERS Safety Report 6731884-X (Version None)
Quarter: 2010Q2

REPORT INFORMATION
  Report Type: 
  Country: None (occurrence: None)
  Receive Date: 20100514
  Receipt Date: 20100329
  Transmission Date: 20101027
  Serious: Yes (Other)
  Sender: FDA-Public Use
  Company Number: AUR-APL-2010-01045

PATIENT
  Age: 47 Year
  Sex: Female
  Weight: 55.78 kg

DRUGS (3)
  1. SERTRALINE HCL [Suspect]
     Indication: DEPRESSION
     Dosage: 150 MG, DAILY
     Dates: end: 20100101
  2. WELLBUTRIN XL [Concomitant]
  3. CALCIUM CARBONATE [Concomitant]

REACTIONS (6)
  - BALANCE DISORDER [None]
  - FALL [None]
  - GAIT DISTURBANCE [None]
  - GENERAL PHYSICAL HEALTH DETERIORATION [None]
  - MUSCULAR WEAKNESS [None]
  - TREMOR [None]
